FAERS Safety Report 8071978-2 (Version None)
Quarter: 2012Q1

REPORT INFORMATION
  Report Type: 
  Country: None (occurrence: None)
  Receive Date: 20120124
  Receipt Date: 20120124
  Transmission Date: 20120608
  Serious: No
  Sender: FDA-Public Use
  Company Number: None

PATIENT
  Sex: Male
  Weight: 81.6475 kg

DRUGS (2)
  1. PALIPERIDONE [Suspect]
     Dosage: 132
     Dates: start: 20110101, end: 20110112
  2. NON STERILE GLOVES + CATHETER [Suspect]

REACTIONS (2)
  - MUSCLE SPASMS [None]
  - DIABETES MELLITUS [None]
